FAERS Safety Report 16403782 (Version 2)
Quarter: 2019Q3

REPORT INFORMATION
  Report Type: Spontaneous
  Country: PL (occurrence: PL)
  Receive Date: 20190607
  Receipt Date: 20190701
  Transmission Date: 20191004
  Serious: Yes (Hospitalization, Other)
  Sender: FDA-Public Use
  Company Number: PL-ROCHE-2333534

PATIENT
  Age: 63 Year
  Sex: Male

DRUGS (1)
  1. PIRFENIDONE. [Suspect]
     Active Substance: PIRFENIDONE
     Indication: IDIOPATHIC PULMONARY FIBROSIS
     Route: 048
     Dates: start: 201711, end: 201902

REACTIONS (3)
  - Arthralgia [Unknown]
  - Exercise tolerance decreased [Unknown]
  - Rheumatoid arthritis [Unknown]

NARRATIVE: CASE EVENT DATE: 201902
